FAERS Safety Report 17424423 (Version 1)
Quarter: 2020Q1

REPORT INFORMATION
  Report Type: Spontaneous
  Country: JP (occurrence: JP)
  Receive Date: 20200217
  Receipt Date: 20200217
  Transmission Date: 20200409
  Serious: Yes (Other)
  Sender: FDA-Public Use
  Company Number: NVSJ2020JP001868

PATIENT
  Age: 72 Year
  Sex: Male

DRUGS (1)
  1. EVEROLIMUS. [Suspect]
     Active Substance: EVEROLIMUS
     Indication: RENAL TRANSPLANT
     Dosage: UNK
     Route: 065

REACTIONS (6)
  - Hypercholesterolaemia [Recovering/Resolving]
  - Coronary artery stenosis [Unknown]
  - Myocardial ischaemia [Unknown]
  - Arteriosclerosis [Unknown]
  - Dyspnoea exertional [Unknown]
  - Angiopathy [Unknown]
